FAERS Safety Report 4980364-0 (Version None)
Quarter: 2006Q2

REPORT INFORMATION
  Report Type: 
  Country: None (occurrence: None)
  Receive Date: 20060420
  Receipt Date: 20060420
  Transmission Date: 20061013
  Serious: Yes (Hospitalization)
  Sender: FDA-Public Use
  Company Number: None

PATIENT
  Age: 38 Year
  Sex: Female
  Weight: 73.0291 kg

DRUGS (1)
  1. CLINORIL [Suspect]
     Indication: ARTHRALGIA
     Dosage: TWICE A DAY W/FOOD
     Dates: start: 20060329, end: 20060413

REACTIONS (6)
  - EYE SWELLING [None]
  - OCULAR HYPERAEMIA [None]
  - PHARYNGOLARYNGEAL PAIN [None]
  - PYREXIA [None]
  - RESPIRATORY DISORDER [None]
  - TOXIC EPIDERMAL NECROLYSIS [None]
